FAERS Safety Report 10560802 (Version 1)
Quarter: 2014Q4

REPORT INFORMATION
  Report Type: Spontaneous
  Country: US (occurrence: US)
  Receive Date: 20141103
  Receipt Date: 20141103
  Transmission Date: 20150529
  Serious: Yes (Other)
  Sender: FDA-Public Use
  Company Number: US-GLAXOSMITHKLINE-US2014GSK013696

PATIENT
  Sex: Female

DRUGS (1)
  1. FLOLAN [Suspect]
     Active Substance: EPOPROSTENOL SODIUM
     Indication: COR PULMONALE CHRONIC
     Dosage: DOSE: 34 NG/KG/MIN CO, CONCENTRATION: 45,000 NG/ML, VIAL STRENGTH: 1.5 MG, PUMP RATE: NOT REPORTED
     Route: 042
     Dates: start: 20111228

REACTIONS (2)
  - Catheter site infection [Unknown]
  - Device related infection [Unknown]
